FAERS Safety Report 6996790-4 (Version None)
Quarter: 2010Q3

REPORT INFORMATION
  Report Type: 
  Country: None (occurrence: None)
  Receive Date: 20100918
  Receipt Date: 20090710
  Transmission Date: 20110219
  Serious: No
  Sender: FDA-Public Use
  Company Number: US-WYE-H10115909

PATIENT
  Sex: Female
  Weight: 50.85 kg

DRUGS (1)
  1. PREMPRO [Suspect]
     Indication: SKIN WRINKLING
     Route: 048
     Dates: start: 20090703

REACTIONS (2)
  - OFF LABEL USE [None]
  - RASH MACULO-PAPULAR [None]
